FAERS Safety Report 11310991 (Version 8)
Quarter: 2019Q4

REPORT INFORMATION
  Report Type: Report from Study
  Country: DE (occurrence: DE)
  Receive Date: 20150727
  Receipt Date: 20191217
  Transmission Date: 20200122
  Serious: Yes (Death, Hospitalization)
  Sender: FDA-Public Use
  Company Number: DE-ROCHE-1599273

PATIENT
  Age: 72 Year
  Sex: Male
  Weight: 70 kg

DRUGS (10)
  1. VINCRISTIN [Suspect]
     Active Substance: VINCRISTINE
     Indication: DIFFUSE LARGE B-CELL LYMPHOMA
     Route: 040
     Dates: start: 20150319, end: 20150611
  2. UROMITEXAN [Concomitant]
     Active Substance: MESNA
     Indication: PRODUCT USED FOR UNKNOWN INDICATION
     Dosage: 1800 MG, BIW
     Route: 048
     Dates: start: 20150324, end: 20150611
  3. PREDNISOLONE. [Concomitant]
     Active Substance: PREDNISOLONE
     Indication: NAUSEA
     Dosage: DAY 1-5
     Route: 048
     Dates: start: 20150319, end: 20150611
  4. NEULASTA [Concomitant]
     Active Substance: PEGFILGRASTIM
     Indication: PROPHYLAXIS
     Dosage: 6 MG, BIW
     Route: 058
     Dates: start: 20150324
  5. RITUXIMAB. [Suspect]
     Active Substance: RITUXIMAB
     Route: 058
     Dates: start: 20150319, end: 20150611
  6. DOXORUBICIN [Suspect]
     Active Substance: DOXORUBICIN
     Indication: DIFFUSE LARGE B-CELL LYMPHOMA
     Route: 042
     Dates: start: 20150324, end: 20150611
  7. GRANISETRON [Concomitant]
     Active Substance: GRANISETRON
     Indication: NAUSEA
     Dosage: 1 MG, BIW
     Route: 065
     Dates: start: 20150319, end: 20150611
  8. CYCLOPHOSPHAMID [Suspect]
     Active Substance: CYCLOPHOSPHAMIDE
     Indication: DIFFUSE LARGE B-CELL LYMPHOMA
     Route: 042
     Dates: start: 20150324, end: 20150611
  9. RITUXIMAB. [Suspect]
     Active Substance: RITUXIMAB
     Route: 058
     Dates: start: 20150323, end: 20150611
  10. RITUXIMAB. [Suspect]
     Active Substance: RITUXIMAB
     Indication: DIFFUSE LARGE B-CELL LYMPHOMA
     Route: 058
     Dates: start: 20150408

REACTIONS (6)
  - Anaemia [Not Recovered/Not Resolved]
  - General physical health deterioration [Fatal]
  - Leukopenia [Recovered/Resolved with Sequelae]
  - Pneumonia [Fatal]
  - Sepsis [Not Recovered/Not Resolved]
  - Pulmonary toxicity [Fatal]

NARRATIVE: CASE EVENT DATE: 20150402
